FAERS Safety Report 17826283 (Version 1)
Quarter: 2020Q2

REPORT INFORMATION
  Report Type: Spontaneous
  Country: RU (occurrence: RU)
  Receive Date: 20200527
  Receipt Date: 20200527
  Transmission Date: 20200714
  Serious: Yes (Death, Other)
  Sender: FDA-Public Use
  Company Number: RU-INCYTE CORPORATION-2020IN004723

PATIENT

DRUGS (3)
  1. JAKAVI [Suspect]
     Active Substance: RUXOLITINIB
     Indication: PROPHYLAXIS AGAINST GRAFT VERSUS HOST DISEASE
     Dosage: 15 MG, QD (DAY +5 TO +100)
     Route: 065
  2. CYCLOPHOSPHAMIDE. [Suspect]
     Active Substance: CYCLOPHOSPHAMIDE
     Indication: PROPHYLAXIS AGAINST GRAFT VERSUS HOST DISEASE
     Dosage: 50 MG/KG (DAY +3 TO +4)
     Route: 065
  3. JAKAVI [Suspect]
     Active Substance: RUXOLITINIB
     Dosage: 10 MG, QD (DOSE REDUCED AT DAY +93)
     Route: 065

REACTIONS (5)
  - Sepsis [Fatal]
  - Product use in unapproved indication [Unknown]
  - Transplant dysfunction [Unknown]
  - Thrombotic microangiopathy [Fatal]
  - Acute graft versus host disease [Unknown]
